FAERS Safety Report 19094104 (Version 2)
Quarter: 2021Q2

REPORT INFORMATION
  Report Type: Spontaneous
  Country: JP (occurrence: JP)
  Receive Date: 20210405
  Receipt Date: 20210419
  Transmission Date: 20210717
  Serious: Yes (Life-Threatening, Other)
  Sender: FDA-Public Use
  Company Number: JP-SA-2021SA110635

PATIENT
  Age: 84 Year
  Sex: Male
  Weight: 52 kg

DRUGS (5)
  1. BAYASPIRIN [Concomitant]
     Active Substance: ASPIRIN
     Dosage: 100 MG
     Dates: start: 20130909
  2. BETANIS [Suspect]
     Active Substance: MIRABEGRON
     Indication: HYPERTONIC BLADDER
     Dosage: 50 MG, ONCE DAILY, AFTER DINNER
     Route: 048
     Dates: end: 20201222
  3. MILLIS [Concomitant]
     Dosage: TAPE (INCLUDING POULTICE)
     Dates: start: 20161213
  4. HARNAL [Suspect]
     Active Substance: TAMSULOSIN HYDROCHLORIDE
     Indication: PRODUCT USED FOR UNKNOWN INDICATION
     Dosage: 0.2 MG, ONCE DAILY, AFTER DINNER
     Route: 048
     Dates: end: 20200805
  5. AMLODIPINE [Concomitant]
     Active Substance: AMLODIPINE BESYLATE
     Dosage: 2.5 MG
     Dates: start: 20000926

REACTIONS (4)
  - Blood pressure decreased [Unknown]
  - Blood pressure increased [Unknown]
  - Blood pressure increased [Unknown]
  - Blood pressure decreased [Unknown]

NARRATIVE: CASE EVENT DATE: 20200805
